FAERS Safety Report 5777632-1 (Version None)
Quarter: 2008Q2

REPORT INFORMATION
  Report Type: 
  Country: None (occurrence: None)
  Receive Date: 20080618
  Receipt Date: 20080610
  Transmission Date: 20081010
  Serious: Yes (Other)
  Sender: FDA-Public Use
  Company Number: JP-PFIZER INC-2008036631

PATIENT
  Age: 73 Year
  Sex: Male

DRUGS (2)
  1. NORVASC [Suspect]
     Indication: HYPERTENSION
     Dosage: DAILY DOSE:5MG
     Route: 048
  2. MYSLEE [Concomitant]
     Route: 048

REACTIONS (3)
  - ERYTHEMA [None]
  - GINGIVAL SWELLING [None]
  - SKIN ULCER [None]
